FAERS Safety Report 6843694-3 (Version None)
Quarter: 2010Q3

REPORT INFORMATION
  Report Type: 
  Country: None (occurrence: None)
  Receive Date: 20100714
  Receipt Date: 20100714
  Transmission Date: 20110219
  Serious: No
  Sender: FDA-Public Use
  Company Number: None

PATIENT
  Age: 43 Year
  Sex: Female
  Weight: 88.4514 kg

DRUGS (1)
  1. ZICAM SWAB [Suspect]
     Indication: NASOPHARYNGITIS
     Dosage: 1 SWAB 2 X DAY NASAL
     Route: 045
     Dates: start: 20091210, end: 20091212

REACTIONS (2)
  - AGEUSIA [None]
  - ANOSMIA [None]
